FAERS Safety Report 12009696 (Version 2)
Quarter: 2016Q1

REPORT INFORMATION
  Report Type: Spontaneous
  Country: US (occurrence: US)
  Receive Date: 20160205
  Receipt Date: 20160208
  Transmission Date: 20160526
  Serious: Yes (Other)
  Sender: FDA-Public Use
  Company Number: US-TEVA-632471ACC

PATIENT
  Age: 28 Year
  Sex: Female
  Weight: 62.2 kg

DRUGS (1)
  1. PLAN B ONE-STEP [Suspect]
     Active Substance: LEVONORGESTREL
     Indication: POST COITAL CONTRACEPTION
     Dates: start: 20160107, end: 20160107

REACTIONS (2)
  - Pregnancy after post coital contraception [Unknown]
  - Breast tenderness [Recovered/Resolved]

NARRATIVE: CASE EVENT DATE: 20160123
